FAERS Safety Report 8596246-1 (Version None)
Quarter: 2012Q3

REPORT INFORMATION
  Report Type: 
  Country: None (occurrence: None)
  Receive Date: 20120815
  Receipt Date: 20120810
  Transmission Date: 20120928
  Serious: Yes (Hospitalization, Other)
  Sender: FDA-Public Use
  Company Number: PHHY2012FR069853

PATIENT
  Sex: Female
  Weight: 50 kg

DRUGS (3)
  1. ESCITALOPRAM [Concomitant]
  2. IMATINIB MESYLATE [Suspect]
     Dosage: 300 MG, UNK
     Route: 048
     Dates: start: 20120101
  3. IMATINIB MESYLATE [Suspect]
     Indication: CHRONIC MYELOID LEUKAEMIA
     Dosage: 600 MG, DAILY
     Route: 048
     Dates: start: 20060809

REACTIONS (2)
  - SKIN REACTION [None]
  - BREAST CANCER [None]
